FAERS Safety Report 21301704 (Version 1)
Quarter: 2022Q3

REPORT INFORMATION
  Report Type: Spontaneous
  Country: US (occurrence: None)
  Receive Date: 20220906
  Receipt Date: 20220906
  Transmission Date: 20221026
  Serious: Yes (Hospitalization)
  Sender: FDA-Public Use
  Company Number: None

PATIENT
  Age: 77 Year
  Sex: Male
  Weight: 91 kg

DRUGS (2)
  1. RIVAROXABAN [Suspect]
     Active Substance: RIVAROXABAN
     Indication: Atrial fibrillation
     Dosage: FREQUENCY : TWICE A DAY;?
     Route: 048
     Dates: start: 20201015
  2. ASPIRIN [Suspect]
     Active Substance: ASPIRIN
     Indication: Vascular device user
     Dosage: FREQUENCY : DAILY;?
     Route: 048
     Dates: start: 20180326

REACTIONS (4)
  - Rectal haemorrhage [None]
  - Gastric haemorrhage [None]
  - Anaemia [None]
  - Haemoglobin decreased [None]

NARRATIVE: CASE EVENT DATE: 20220813
